FAERS Safety Report 10040970 (Version 1)
Quarter: 2014Q1

REPORT INFORMATION
  Report Type: Spontaneous
  Country: US (occurrence: None)
  Receive Date: 20140326
  Receipt Date: 20140326
  Transmission Date: 20141002
  Serious: Yes (Death, Hospitalization)
  Sender: FDA-Public Use
  Company Number: None

PATIENT
  Age: 59 Year
  Sex: Male
  Weight: 85.6 kg

DRUGS (18)
  1. DAUNORUBICIN [Suspect]
  2. ACYCLOVIR [Concomitant]
  3. AMINOCAPROIC ACID [Concomitant]
  4. AMIODARONE [Concomitant]
  5. CASPOFUNGIN [Concomitant]
  6. FENTANYL [Concomitant]
  7. HYDROCORTISONE SODIUM SUCCINATE [Concomitant]
  8. MEROPENEM [Concomitant]
  9. MORPHINE [Concomitant]
  10. MUCOSITIS MIXTURE [Concomitant]
  11. NOREPINEPHRINE [Concomitant]
  12. NORMAL SALINE [Concomitant]
  13. ONDANSETRON [Concomitant]
  14. PANTOPRAZOLE [Concomitant]
  15. PHENYLEPRINE [Concomitant]
  16. PROPOFOL [Concomitant]
  17. VANCOMYCIN [Concomitant]
  18. VASOPRESSIN [Concomitant]

REACTIONS (24)
  - Chills [None]
  - Pyrexia [None]
  - Lobar pneumonia [None]
  - Oropharyngeal pain [None]
  - Stomatitis [None]
  - Cough [None]
  - Aspiration [None]
  - Pancytopenia [None]
  - Agitation [None]
  - Blood pressure increased [None]
  - Tachycardia [None]
  - Tachypnoea [None]
  - Unresponsive to stimuli [None]
  - Pulse absent [None]
  - Ventricular tachycardia [None]
  - Sinus tachycardia [None]
  - Metabolic encephalopathy [None]
  - Hypoxic-ischaemic encephalopathy [None]
  - Pericardial effusion [None]
  - Haemodynamic instability [None]
  - Atrial fibrillation [None]
  - Renal failure acute [None]
  - Coagulopathy [None]
  - Ventricular hypokinesia [None]
